FAERS Safety Report 8694898 (Version 7)
Quarter: 2013Q4

REPORT INFORMATION
  Report Type: Spontaneous
  Country: CN (occurrence: CN)
  Receive Date: 20120731
  Receipt Date: 20131105
  Transmission Date: 20140711
  Serious: Yes (Death, Hospitalization, Other)
  Sender: FDA-Public Use
  Company Number: PHHY2012CN062738

PATIENT
  Age: 44 Year
  Sex: Male

DRUGS (1)
  1. SEBIVO [Suspect]
     Indication: CHRONIC HEPATITIS B
     Dosage: 1 DF, DAILY
     Route: 048
     Dates: start: 20111025, end: 20120710

REACTIONS (40)
  - Rhabdomyolysis [Fatal]
  - Acute pulmonary oedema [Fatal]
  - Asthenia [Fatal]
  - Blood creatine phosphokinase increased [Fatal]
  - Oedema peripheral [Fatal]
  - Lactic acidosis [Fatal]
  - Metabolic acidosis [Fatal]
  - Renal failure acute [Fatal]
  - Oedema [Fatal]
  - Pain in extremity [Fatal]
  - Gait disturbance [Fatal]
  - Fatigue [Fatal]
  - Myoglobin blood increased [Fatal]
  - Nausea [Fatal]
  - Vomiting [Fatal]
  - Muscular weakness [Fatal]
  - Myalgia [Fatal]
  - Ecchymosis [Fatal]
  - Skin discolouration [Fatal]
  - Spinal cord oedema [Fatal]
  - Abdominal rebound tenderness [Fatal]
  - Decreased appetite [Fatal]
  - Breath sounds abnormal [Fatal]
  - Dyspnoea [Fatal]
  - Palpitations [Fatal]
  - Rales [Fatal]
  - Sinus tachycardia [Fatal]
  - Tachypnoea [Fatal]
  - Multi-organ failure [Fatal]
  - Shock [Fatal]
  - Blood pressure decreased [Fatal]
  - Coma [Fatal]
  - Pleural effusion [Not Recovered/Not Resolved]
  - Bullous lung disease [Not Recovered/Not Resolved]
  - Left atrial dilatation [Not Recovered/Not Resolved]
  - Ventricular internal diameter abnormal [Not Recovered/Not Resolved]
  - Aortic disorder [Not Recovered/Not Resolved]
  - Diastolic dysfunction [Not Recovered/Not Resolved]
  - Listless [Not Recovered/Not Resolved]
  - Pulmonary bulla [Unknown]
